FAERS Safety Report 8303028-4 (Version None)
Quarter: 2012Q2

REPORT INFORMATION
  Report Type: 
  Country: None (occurrence: None)
  Receive Date: 20120421
  Receipt Date: 20120411
  Transmission Date: 20120825
  Serious: Yes (Other)
  Sender: FDA-Public Use
  Company Number: US-VERTEX PHARMACEUTICALS INC.-AE-2012-004413

PATIENT
  Sex: Female
  Weight: 106.24 kg

DRUGS (5)
  1. INCIVEK [Suspect]
     Indication: HEPATITIS C
     Route: 048
     Dates: start: 20111104, end: 20111224
  2. RIBAVIRIN [Concomitant]
     Route: 048
     Dates: end: 20120101
  3. PEGASYS [Concomitant]
     Indication: HEPATITIS C
     Route: 058
     Dates: start: 20111104
  4. RIBAVIRIN [Concomitant]
     Indication: HEPATITIS C
     Route: 048
     Dates: start: 20111104
  5. PEGASYS [Concomitant]
     Route: 058
     Dates: end: 20120101

REACTIONS (2)
  - PANCYTOPENIA [None]
  - RASH [None]
